FAERS Safety Report 24059167 (Version 1)
Quarter: 2024Q3

REPORT INFORMATION
  Report Type: Spontaneous
  Country: DE (occurrence: DE)
  Receive Date: 20240708
  Receipt Date: 20240708
  Transmission Date: 20241017
  Serious: Yes (Other)
  Sender: Unknown Manufacturer
  Company Number: DE-AstraZeneca-2024A148029

PATIENT

DRUGS (7)
  1. METOPROLOL SUCCINATE [Suspect]
     Active Substance: METOPROLOL SUCCINATE
     Indication: Hypertension
     Dosage: 23.75 [MG/D ]; 0. - 39. GESTATIONAL WEEK
     Route: 048
     Dates: start: 20230330, end: 20231228
  2. QUETIAPINE FUMARATE [Suspect]
     Active Substance: QUETIAPINE FUMARATE
     Indication: Psychotic disorder
     Dosage: 300 [MG/D ]/ 200 MG RETARDED AND 100 MG UNRETARDED;(0. - 39. GESTATIONAL WEEK)
     Dates: start: 20230330, end: 20231228
  3. PAROXETINE [Suspect]
     Active Substance: PAROXETINE
     Indication: Psychotic disorder
     Dosage: 80 [MG/D ]/ DOSAGE UNCLEAR! 40 OR 80 MG/D; 0. - 39.GESTATIONAL WEEK
     Dates: start: 20230330, end: 20231228
  4. PROTAPHANE [Concomitant]
     Active Substance: INSULIN HUMAN
     Indication: Product used for unknown indication
     Dosage: 16 [IE/D ]/ 8-0-0-8 IU/D 2 SEPARATED DOSES; 28.2. - 39. GESTATIONAL WEEK16[IU]/DL DAILY
     Dates: start: 20231014, end: 20231228
  5. CODEINE [Concomitant]
     Active Substance: CODEINE
     Indication: Cough
     Dosage: 10 DROPS AT NIGHT, MG UNKNOWN; 31. - 32.1. GESTATIONAL WEEK
     Dates: start: 20231102, end: 20231110
  6. METHYLDOPA [Concomitant]
     Active Substance: METHYLDOPA
     Indication: Hypertension
     Dosage: STARTED IN THE COURSE OF PREGNANCY, 2 TABLETS/DAY, NO DETAILS KNOWN
  7. ACTRAPID [Concomitant]
     Active Substance: INSULIN HUMAN
     Indication: Product used for unknown indication
     Dosage: 20 [IE/D ]/ 8-6-6 IU/D; 28.2. - 39. GESTATIONAL WEEK20[IU]/DL DAILY
     Dates: start: 20231014, end: 20231228

REACTIONS (2)
  - Gestational diabetes [Recovered/Resolved]
  - Exposure during pregnancy [Unknown]
